FAERS Safety Report 21410209 (Version 1)
Quarter: 2022Q4

REPORT INFORMATION
  Report Type: Spontaneous
  Country: US (occurrence: US)
  Receive Date: 20221005
  Receipt Date: 20221005
  Transmission Date: 20230113
  Serious: No
  Sender: FDA-Public Use
  Company Number: US-ALLERGAN-2224390US

PATIENT
  Age: 54 Year
  Sex: Female

DRUGS (2)
  1. UBRELVY [Suspect]
     Active Substance: UBROGEPANT
     Indication: Migraine
     Dosage: 100 MG, Q MONTH
     Route: 048
     Dates: start: 202205
  2. UBRELVY [Suspect]
     Active Substance: UBROGEPANT
     Dosage: 100 DF 3/WEEK
     Route: 048
     Dates: start: 202205

REACTIONS (1)
  - Migraine [Recovered/Resolved with Sequelae]

NARRATIVE: CASE EVENT DATE: 20220501
